FAERS Safety Report 8438762-9 (Version None)
Quarter: 2012Q2

REPORT INFORMATION
  Report Type: 
  Country: None (occurrence: None)
  Receive Date: 20120608
  Receipt Date: 20120523
  Transmission Date: 20120825
  Serious: Yes (Disabling, Other)
  Sender: FDA-Public Use
  Company Number: 2012AP001560

PATIENT
  Sex: Female

DRUGS (1)
  1. IBANDRONATE SODIUM [Suspect]
     Indication: PRODUCT USED FOR UNKNOWN INDICATION

REACTIONS (2)
  - HIP FRACTURE [None]
  - WRONG TECHNIQUE IN DRUG USAGE PROCESS [None]
